FAERS Safety Report 7643669-0 (Version None)
Quarter: 2011Q3

REPORT INFORMATION
  Report Type: 
  Country: None (occurrence: None)
  Receive Date: 20110729
  Receipt Date: 20110726
  Transmission Date: 20111222
  Serious: Yes (Death, Other)
  Sender: FDA-Public Use
  Company Number: PHHY2011AR67425

PATIENT
  Sex: Male

DRUGS (1)
  1. EXELON [Suspect]
     Indication: FRONTOTEMPORAL DEMENTIA
     Dosage: 1 DF, DAILY
     Route: 062
     Dates: start: 20100801

REACTIONS (3)
  - BRONCHIAL NEOPLASM [None]
  - PNEUMONIA [None]
  - GENERAL PHYSICAL HEALTH DETERIORATION [None]
